FAERS Safety Report 21355994 (Version 4)
Quarter: 2022Q4

REPORT INFORMATION
  Report Type: Spontaneous
  Country: US (occurrence: US)
  Receive Date: 20220920
  Receipt Date: 20221202
  Transmission Date: 20230113
  Serious: No
  Sender: FDA-Public Use
  Company Number: US-BRISTOL-MYERS SQUIBB COMPANY-2022-108536

PATIENT
  Age: 17 Year
  Sex: Female

DRUGS (3)
  1. ORENCIA [Suspect]
     Active Substance: ABATACEPT
     Indication: Juvenile idiopathic arthritis
     Route: 058
     Dates: start: 20200401
  2. ORENCIA [Suspect]
     Active Substance: ABATACEPT
     Route: 058
     Dates: start: 20200330
  3. ORENCIA [Suspect]
     Active Substance: ABATACEPT
     Dosage: FREQ: WEEKLY
     Route: 058
     Dates: start: 202003

REACTIONS (5)
  - Oral pain [Unknown]
  - Gingivitis [Unknown]
  - Joint swelling [Unknown]
  - Arthralgia [Unknown]
  - Nasopharyngitis [Unknown]

NARRATIVE: CASE EVENT DATE: 20220901
